FAERS Safety Report 23999853 (Version 1)
Quarter: 2024Q2

REPORT INFORMATION
  Report Type: Spontaneous
  Country: US (occurrence: None)
  Receive Date: 20240620
  Receipt Date: 20240620
  Transmission Date: 20240716
  Serious: Yes (Hospitalization, Other)
  Sender: FDA-Public Use
  Company Number: None

PATIENT
  Age: 53 Year
  Sex: 0
  Weight: 148.5 kg

DRUGS (11)
  1. SEMAGLUTIDE [Suspect]
     Active Substance: SEMAGLUTIDE
     Indication: Diabetes mellitus
     Dosage: OTHER FREQUENCY : WEEKLY;?
     Dates: start: 20220312, end: 20230802
  2. SEMAGLUTIDE [Suspect]
     Active Substance: SEMAGLUTIDE
     Indication: Weight decreased
  3. LACTULOSE [Suspect]
     Active Substance: LACTULOSE
  4. ATENOLOL [Concomitant]
     Active Substance: ATENOLOL
  5. LACTULOSE [Concomitant]
     Active Substance: LACTULOSE
  6. INSULIN NOS [Concomitant]
     Active Substance: INSULIN NOS
  7. JARDIANCE [Concomitant]
     Active Substance: EMPAGLIFLOZIN
  8. ZINC [Concomitant]
     Active Substance: PYRITHIONE ZINC\ZINC\ZINC CHLORIDE
  9. B1 [Concomitant]
  10. VITAMIN B COMPLEX [Concomitant]
     Active Substance: CYANOCOBALAMIN\DEXPANTHENOL\NIACINAMIDE\PYRIDOXINE HYDROCHLORIDE\RIBOFLAVIN 5^-PHOSPHATE SODIUM\THIA
  11. OMEPRAZOLE [Concomitant]
     Active Substance: DONEPEZIL HYDROCHLORIDE\OMEPRAZOLE\OMEPRAZOLE MAGNESIUM

REACTIONS (2)
  - Impaired gastric emptying [None]
  - Hepatic encephalopathy [None]

NARRATIVE: CASE EVENT DATE: 20230701
